FAERS Safety Report 21597846 (Version 3)
Quarter: 2023Q1

REPORT INFORMATION
  Report Type: Spontaneous
  Country: DE (occurrence: DE)
  Receive Date: 20221115
  Receipt Date: 20230104
  Transmission Date: 20230418
  Serious: Yes (Other)
  Sender: FDA-Public Use
  Company Number: None

PATIENT
  Age: 53 Year
  Sex: Female
  Weight: 68 kg

DRUGS (4)
  1. CIPROFLOXACIN [Suspect]
     Active Substance: CIPROFLOXACIN
     Indication: Bacterial infection
     Dosage: 250MG,BID, 2X 250 MG DAILY FOR 10 DAYS (12 HOURS)
     Route: 048
     Dates: start: 20090515, end: 20090525
  2. CIPROFLOXACIN [Suspect]
     Active Substance: CIPROFLOXACIN
     Indication: Acne
  3. CIPROFLOXACIN [Suspect]
     Active Substance: CIPROFLOXACIN
     Indication: Dermatitis
  4. CIPROFLOXACIN [Suspect]
     Active Substance: CIPROFLOXACIN
     Indication: Furuncle

REACTIONS (18)
  - Myelosuppression [Recovered/Resolved with Sequelae]
  - Muscle contractions involuntary [Recovered/Resolved with Sequelae]
  - Muscle twitching [Recovered/Resolved with Sequelae]
  - Restless legs syndrome [Unknown]
  - Dyskinesia [Unknown]
  - Nervousness [Unknown]
  - Muscle atrophy [Recovered/Resolved with Sequelae]
  - Feeling abnormal [Unknown]
  - Muscular weakness [Recovered/Resolved with Sequelae]
  - Connective tissue disorder [Unknown]
  - Muscle spasms [Unknown]
  - Tibia fracture [Unknown]
  - Formication [Recovered/Resolved with Sequelae]
  - Mental fatigue [Unknown]
  - Limb discomfort [Unknown]
  - Pain in extremity [Unknown]
  - Fatigue [Recovered/Resolved with Sequelae]
  - Paraesthesia [Recovered/Resolved with Sequelae]

NARRATIVE: CASE EVENT DATE: 20100101
